FAERS Safety Report 5592471-2 (Version None)
Quarter: 2008Q1

REPORT INFORMATION
  Report Type: 
  Country: None (occurrence: None)
  Receive Date: 20080115
  Receipt Date: 20080107
  Transmission Date: 20080703
  Serious: Yes (Other)
  Sender: FDA-Public Use
  Company Number: JP-PFIZER INC-2008002302

PATIENT
  Age: 80 Year

DRUGS (5)
  1. HALCION [Suspect]
     Route: 048
  2. LIPITOR [Concomitant]
     Route: 048
  3. LOXONIN [Concomitant]
     Route: 048
  4. CYANOCOBALAMIN [Concomitant]
     Route: 048
  5. TERNELIN [Concomitant]
     Route: 048

REACTIONS (1)
  - DEMENTIA [None]
